FAERS Safety Report 4761515-X (Version None)
Quarter: 2005Q3

REPORT INFORMATION
  Report Type: 
  Country: None (occurrence: None)
  Receive Date: 20050906
  Receipt Date: 20050830
  Transmission Date: 20060218
  Serious: Yes (Life-Threatening)
  Sender: FDA-Public Use
  Company Number: D01200506158

PATIENT
  Age: 57 Year

DRUGS (8)
  1. FONDAPARINUX SODIUM [Suspect]
     Indication: ACUTE MYOCARDIAL INFARCTION
     Dosage: 2.5MG PER DAY
     Route: 058
     Dates: start: 20050825, end: 20050830
  2. ASPIRIN [Concomitant]
  3. ISOSORBIDE [Concomitant]
  4. FUROSEMIDE [Concomitant]
  5. SODIUM BICARBONATE [Concomitant]
  6. BUPRENORPHINE [Concomitant]
  7. PHENERGAN [Concomitant]
  8. ENALAPRIL MALEATE [Concomitant]

REACTIONS (5)
  - CARDIAC FAILURE [None]
  - PULMONARY OEDEMA [None]
  - RENAL FAILURE ACUTE [None]
  - RESPIRATION ABNORMAL [None]
  - SOMNOLENCE [None]
